FAERS Safety Report 9257775 (Version 1)
Quarter: 2013Q1

REPORT INFORMATION
  Report Type: Spontaneous
  Country: US (occurrence: None)
  Receive Date: 20121212
  Receipt Date: 20121212
  Transmission Date: 20140127
  Serious: No
  Sender: FDA-Public Use
  Company Number: 1208USA012657

PATIENT
  Sex: Male

DRUGS (3)
  1. VICTRELIS [Suspect]
     Indication: HEPATITIS C
     Route: 048
     Dates: start: 20120301, end: 201203
  2. PEGINTRON [Suspect]
     Indication: HEPATITIS C
     Dates: start: 20120301, end: 201203
  3. REBETOL [Suspect]
     Indication: HEPATITIS C
     Route: 048
     Dates: start: 20120301, end: 201203

REACTIONS (7)
  - Hepatic pain [None]
  - Gait disturbance [None]
  - Weight increased [None]
  - Abdominal pain upper [None]
  - Memory impairment [None]
  - Abdominal pain [None]
  - Fatigue [None]
